FAERS Safety Report 15230668 (Version 1)
Quarter: 2018Q3

REPORT INFORMATION
  Report Type: Report from Study
  Country: US (occurrence: US)
  Receive Date: 20180802
  Receipt Date: 20180802
  Transmission Date: 20181010
  Serious: Yes (Hospitalization)
  Sender: FDA-Public Use
  Company Number: US-SA-2018SA010448

PATIENT
  Age: 61 Year
  Sex: Female
  Weight: 69 kg

DRUGS (33)
  1. FLOVENT [Concomitant]
     Active Substance: FLUTICASONE PROPIONATE
     Dosage: 220 UG,BID
     Route: 055
     Dates: start: 20170728, end: 20171223
  2. BALSALAZIDE [Concomitant]
     Active Substance: BALSALAZIDE
     Dosage: 1500 MG,QD
     Route: 048
     Dates: start: 2013
  3. PRAVACHOL [Concomitant]
     Active Substance: PRAVASTATIN SODIUM
     Dosage: 80 MG,QD
     Route: 048
     Dates: start: 201303
  4. CAPTOPRIL. [Concomitant]
     Active Substance: CAPTOPRIL
     Dosage: 12.5 MG,QD
     Route: 048
     Dates: start: 2012
  5. ERGOCALCIFEROL. [Concomitant]
     Active Substance: ERGOCALCIFEROL
     Indication: PROPHYLAXIS
     Dosage: 1 DF,QD
     Route: 048
     Dates: start: 2012
  6. TOCOPHEROL [Concomitant]
     Active Substance: TOCOPHEROL
     Indication: PROPHYLAXIS
     Dosage: 1 DF,QD
     Route: 048
     Dates: start: 2012
  7. ALLEGRA [Concomitant]
     Active Substance: FEXOFENADINE HYDROCHLORIDE
     Dosage: 180 MG,QD
     Route: 048
     Dates: start: 201309
  8. ARMOUR THYROID [Concomitant]
     Active Substance: THYROID, PORCINE
     Dosage: 60 MG,QD
     Route: 048
     Dates: start: 2001
  9. DUPILUMAB [Suspect]
     Active Substance: DUPILUMAB
     Indication: ASTHMA
     Dosage: 300 MG,1X
     Route: 058
     Dates: start: 20170728, end: 20170728
  10. AZELASTINE. [Concomitant]
     Active Substance: AZELASTINE HYDROCHLORIDE
     Dosage: 274 UG,QD
     Route: 045
     Dates: start: 20130724
  11. CHROMIUM PICOLINATE [Concomitant]
     Active Substance: CHROMIUM PICOLINATE
     Indication: PROPHYLAXIS
     Dosage: 1 DF,QD
     Route: 048
     Dates: start: 2012
  12. TESTOSTERONE. [Concomitant]
     Active Substance: TESTOSTERONE
     Dosage: 2 %, QD
     Route: 061
     Dates: start: 2008
  13. LEVOSALBUTAMOL [Suspect]
     Active Substance: LEVALBUTEROL
     Indication: ASTHMA
     Dosage: 1.25 UG,PRN
     Route: 055
     Dates: start: 20141023
  14. SINGULAIR [Concomitant]
     Active Substance: MONTELUKAST SODIUM
     Dosage: 10 MG,QD
     Route: 048
     Dates: start: 20170728
  15. PLAVIX [Concomitant]
     Active Substance: CLOPIDOGREL BISULFATE
     Indication: PROPHYLAXIS
     Dosage: 75 MG,QD
     Route: 048
     Dates: start: 201303
  16. BUSPAR [Concomitant]
     Active Substance: BUSPIRONE HYDROCHLORIDE
     Dosage: 30 MG,QD
     Route: 048
     Dates: start: 2002
  17. ESTRADIOL. [Concomitant]
     Active Substance: ESTRADIOL
     Dosage: 0.5 MG, QD
     Route: 048
     Dates: start: 1990
  18. BUDESONIDE/FORMOTEROL FUMARATE [Suspect]
     Active Substance: BUDESONIDE\FORMOTEROL FUMARATE
     Indication: ASTHMA
     Dosage: UNK UNK,QD
     Route: 055
     Dates: start: 20080904, end: 20170727
  19. BUDESONIDE/FORMOTEROL FUMARATE [Suspect]
     Active Substance: BUDESONIDE\FORMOTEROL FUMARATE
     Dosage: 160 UG,BID
     Route: 055
     Dates: start: 20170728, end: 20171223
  20. LINUM USITATISSIMUM SEED OIL [Concomitant]
     Indication: PROPHYLAXIS
     Dosage: 1 DF,QD
     Route: 048
     Dates: start: 2012
  21. VITAMIN B COMPLEX [Concomitant]
     Active Substance: CYANOCOBALAMIN\DEXPANTHENOL\NIACINAMIDE\PYRIDOXINE HYDROCHLORIDE\RIBOFLAVIN 5^-PHOSPHATE SODIUM\THIAMINE HYDROCHLORIDE\VITAMIN B COMPLEX
     Indication: PROPHYLAXIS
     Dosage: 1 DF,QD
     Route: 048
     Dates: start: 2012
  22. TRAZODONE [Concomitant]
     Active Substance: TRAZODONE HYDROCHLORIDE
     Dosage: 150 MG,QD
     Route: 048
     Dates: start: 2002
  23. RESTASIS [Concomitant]
     Active Substance: CYCLOSPORINE
     Dosage: 2.8 ML,QD
     Route: 048
     Dates: start: 2013
  24. PROGESTERONE. [Concomitant]
     Active Substance: PROGESTERONE
     Dosage: 100 MG, QD
     Route: 048
     Dates: start: 1991
  25. DUPILUMAB [Suspect]
     Active Substance: DUPILUMAB
     Dosage: 300 MG,QOW
     Route: 058
     Dates: start: 20170808, end: 20180612
  26. BUDESONIDE/FORMOTEROL FUMARATE [Suspect]
     Active Substance: BUDESONIDE\FORMOTEROL FUMARATE
     Dosage: 160 UG,BID
     Route: 055
     Dates: start: 20180130
  27. SALBUTAMOL [Suspect]
     Active Substance: ALBUTEROL
     Indication: ASTHMA
     Dosage: 2 DF,QD
     Route: 055
     Dates: start: 20030128
  28. OXYCODONE HYDROCHLORIDE;PARACETAMOL [Concomitant]
     Dosage: UNK UNK,QD
     Route: 048
     Dates: start: 2012
  29. CALCIUM [Concomitant]
     Active Substance: CALCIUM
     Indication: PROPHYLAXIS
     Dosage: 1 DF,QD
     Route: 048
     Dates: start: 2012
  30. FISH OIL [Concomitant]
     Active Substance: FISH OIL
     Indication: PROPHYLAXIS
     Dosage: 1 DF,QD
     Route: 048
     Dates: start: 2012
  31. PREVACID [Concomitant]
     Active Substance: LANSOPRAZOLE
     Dosage: 20 MG, QD
     Route: 048
     Dates: start: 201712
  32. CELEBREX [Concomitant]
     Active Substance: CELECOXIB
     Dosage: 300 MG,QD
     Route: 048
     Dates: start: 201604
  33. PREVACID [Concomitant]
     Active Substance: LANSOPRAZOLE
     Indication: PROPHYLAXIS
     Dosage: 30 MG,QD
     Route: 048
     Dates: start: 200909, end: 201712

REACTIONS (1)
  - Pneumonia bacterial [Recovered/Resolved]

NARRATIVE: CASE EVENT DATE: 20171213
